FAERS Safety Report 7878306-3 (Version None)
Quarter: 2011Q4

REPORT INFORMATION
  Report Type: 
  Country: None (occurrence: None)
  Receive Date: 20111028
  Receipt Date: 20111018
  Transmission Date: 20120403
  Serious: Yes (Hospitalization)
  Sender: FDA-Public Use
  Company Number: 11-659

PATIENT
  Age: 40 Year
  Sex: Male

DRUGS (1)
  1. IBUPROFEN [Suspect]
     Indication: BACK PAIN
     Dosage: 1.4-2.0G/DAY

REACTIONS (8)
  - SINUS BRADYCARDIA [None]
  - HYPOPHOSPHATAEMIA [None]
  - HYPOKALAEMIA [None]
  - ELECTROCARDIOGRAM QT PROLONGED [None]
  - RENAL TUBULAR ACIDOSIS [None]
  - MUSCULAR WEAKNESS [None]
  - BRADYCARDIA [None]
  - HYPOURICAEMIA [None]
